FAERS Safety Report 17807136 (Version 1)
Quarter: 2020Q2

REPORT INFORMATION
  Report Type: Spontaneous
  Country: MY (occurrence: MY)
  Receive Date: 20200520
  Receipt Date: 20200520
  Transmission Date: 20200714
  Serious: Yes (Other)
  Sender: FDA-Public Use
  Company Number: MY-BAXTER-2020BAX010463

PATIENT
  Age: 42 Year
  Sex: Female

DRUGS (2)
  1. HOLOXAN INJ 1GM (30ML VIAL) [Suspect]
     Active Substance: IFOSFAMIDE
     Indication: EWING^S SARCOMA
     Dosage: 30 ML VIAL
     Route: 065
  2. HOLOXAN INJ 1GM (30ML VIAL) [Suspect]
     Active Substance: IFOSFAMIDE
     Dosage: 30 ML VIAL, DOSE REDUCED
     Route: 065

REACTIONS (1)
  - Chest discomfort [Recovered/Resolved]
